FAERS Safety Report 7358103-8 (Version None)
Quarter: 2011Q1

REPORT INFORMATION
  Report Type: 
  Country: None (occurrence: None)
  Receive Date: 20110317
  Receipt Date: 20110311
  Transmission Date: 20110831
  Serious: Yes (Hospitalization)
  Sender: FDA-Public Use
  Company Number: JP-EISAI INC-E2090-01515-CLI-JP

PATIENT
  Sex: Male

DRUGS (15)
  1. NAUZELIN [Concomitant]
  2. CARBIDOPA AND LEVODOPA [Concomitant]
  3. FOSAMAC [Concomitant]
  4. COMTAN [Concomitant]
  5. MUCODYNE [Concomitant]
  6. MOHRUS PAP [Concomitant]
  7. ZONISAMIDE [Suspect]
     Indication: PARKINSON'S DISEASE
     Dosage: BLINDED THERAPY
     Route: 048
     Dates: start: 20101211, end: 20110304
  8. PRAMIPEXOLE DIHYDROCHLORIDE [Concomitant]
  9. MAGMITT [Concomitant]
  10. SEROQUEL [Concomitant]
  11. URIEF [Concomitant]
  12. TOMIRON [Concomitant]
  13. ADALAT [Concomitant]
  14. AMOBAN [Concomitant]
  15. SUMILU STICK [Concomitant]

REACTIONS (1)
  - PARKINSON'S DISEASE [None]
